FAERS Safety Report 21736454 (Version 1)
Quarter: 2022Q4

REPORT INFORMATION
  Report Type: Report from Study
  Country: IT (occurrence: IT)
  Receive Date: 20221215
  Receipt Date: 20221215
  Transmission Date: 20230112
  Serious: Yes (Hospitalization)
  Sender: FDA-Public Use
  Company Number: None

PATIENT
  Age: 76 Year
  Sex: Female
  Weight: 60 kg

DRUGS (6)
  1. OXALIPLATIN [Suspect]
     Active Substance: OXALIPLATIN
     Indication: Colorectal adenocarcinoma
     Dosage: ADMINISTERED 156 MG ON 21/10/2022, DAY 1 OF THE 21-DAY TREATMENT CYCLE
     Dates: start: 20221021, end: 20221021
  2. CAPECITABINE [Suspect]
     Active Substance: CAPECITABINE
     Indication: Colorectal adenocarcinoma
     Dosage: DURING CYCLE N.1 OF THERAPY, THE PATIENT TOOK 2500 MG OF PER DAY FOR 14 DAYS.
     Dates: start: 20221022, end: 20221104
  3. PRAZEPAM [Concomitant]
     Active Substance: PRAZEPAM
     Dosage: 10 MG, 1/2 TABLET PER DAY
  4. ATENOLOL [Concomitant]
     Active Substance: ATENOLOL
  5. LANSOPRAZOLE [Concomitant]
     Active Substance: LANSOPRAZOLE
     Dosage: 30 MG, 1 TIME PER DAY
  6. DEXAMETHASONE [Concomitant]
     Active Substance: DEXAMETHASONE
     Dosage: 4 MG, 1/2 TABLET DAILY FOR 3 DAYS?FOLLOWING THE INFUSION

REACTIONS (3)
  - Ischaemic stroke [Recovering/Resolving]
  - Nausea [Unknown]
  - Rectal tenesmus [Unknown]

NARRATIVE: CASE EVENT DATE: 20221104
